FAERS Safety Report 11938258 (Version 1)
Quarter: 2016Q1

REPORT INFORMATION
  Report Type: Spontaneous
  Country: US (occurrence: None)
  Receive Date: 20160120
  Receipt Date: 20160120
  Transmission Date: 20160526
  Serious: Yes (Other)
  Sender: FDA-Public Use
  Company Number: None

PATIENT
  Age: 76 Year
  Sex: Male

DRUGS (23)
  1. GENERLAC [Concomitant]
     Active Substance: LACTULOSE
  2. TRAZODONE [Concomitant]
     Active Substance: TRAZODONE HYDROCHLORIDE
  3. TIVICANJ [Concomitant]
  4. TAMSULOSIN [Concomitant]
     Active Substance: TAMSULOSIN
  5. SELZENTRY [Concomitant]
     Active Substance: MARAVIROC
  6. BICALUTAMIDE. [Concomitant]
     Active Substance: BICALUTAMIDE
  7. PROMETHIAZINE [Concomitant]
  8. NORVIR [Concomitant]
     Active Substance: RITONAVIR
  9. FENTANYL. [Concomitant]
     Active Substance: FENTANYL
  10. ZYTIGA [Suspect]
     Active Substance: ABIRATERONE ACETATE
     Route: 048
     Dates: start: 20151116, end: 20160119
  11. ADVAIR HFA [Concomitant]
     Active Substance: FLUTICASONE PROPIONATE\SALMETEROL XINAFOATE
  12. RAMIPRIL. [Concomitant]
     Active Substance: RAMIPRIL
  13. GLIPIZIDE ER [Concomitant]
     Active Substance: GLIPIZIDE
  14. LAMIVUDINE. [Concomitant]
     Active Substance: LAMIVUDINE
  15. NEXIUM [Concomitant]
     Active Substance: ESOMEPRAZOLE MAGNESIUM
  16. PROAIR HFA [Concomitant]
     Active Substance: ALBUTEROL SULFATE
  17. TRAZODONE [Concomitant]
     Active Substance: TRAZODONE HYDROCHLORIDE
  18. IBUPROFEN. [Concomitant]
     Active Substance: IBUPROFEN
  19. LACTULOSE. [Concomitant]
     Active Substance: LACTULOSE
  20. PRENGISTA [Concomitant]
  21. PREDNISONE. [Concomitant]
     Active Substance: PREDNISONE
  22. LYRICA [Concomitant]
     Active Substance: PREGABALIN
  23. VOLTAREN [Concomitant]
     Active Substance: DICLOFENAC SODIUM

REACTIONS (1)
  - Blood glucose increased [None]

NARRATIVE: CASE EVENT DATE: 20160117
